FAERS Safety Report 7293157-9 (Version None)
Quarter: 2011Q1

REPORT INFORMATION
  Report Type: 
  Country: None (occurrence: None)
  Receive Date: 20110210
  Receipt Date: 20110210
  Transmission Date: 20110831
  Serious: No
  Sender: FDA-Public Use
  Company Number: None

PATIENT
  Sex: Male
  Weight: 45.3597 kg

DRUGS (1)
  1. SINGULAIR [Suspect]
     Indication: ASTHMA
     Dosage: 1 TABLET NIGHTLY PO
     Route: 048
     Dates: start: 20040501, end: 20110208

REACTIONS (6)
  - ENURESIS [None]
  - HEADACHE [None]
  - TREMOR [None]
  - INSOMNIA [None]
  - AGGRESSION [None]
  - ABNORMAL BEHAVIOUR [None]
